FAERS Safety Report 5393669-9 (Version None)
Quarter: 2007Q3

REPORT INFORMATION
  Report Type: 
  Country: None (occurrence: None)
  Receive Date: 20070720
  Receipt Date: 20070720
  Transmission Date: 20080115
  Serious: Yes (Hospitalization)
  Sender: FDA-Public Use
  Company Number: None

PATIENT
  Age: 75 Year
  Sex: Male

DRUGS (2)
  1. VISUDYNE [Suspect]
     Indication: MACULAR DEGENERATION
     Dosage: 4.8 ML I.V.
     Route: 042
     Dates: start: 20060830
  2. AVASTIN [Suspect]
     Dosage: 1.25 MG - INTRAVITREAL
     Dates: start: 20061220

REACTIONS (1)
  - MYOCARDIAL INFARCTION [None]
